FAERS Safety Report 10555039 (Version 2)
Quarter: 2014Q4

REPORT INFORMATION
  Report Type: Spontaneous
  Country: CN (occurrence: CN)
  Receive Date: 20141030
  Receipt Date: 20141128
  Transmission Date: 20150529
  Serious: Yes (Hospitalization, Other)
  Sender: FDA-Public Use
  Company Number: CN-JNJFOC-20141014262

PATIENT
  Age: 6 Year
  Sex: Male
  Weight: 20 kg

DRUGS (3)
  1. TYLENOL CHILDRENS SUSPENSION LIQUID GRAPE [Suspect]
     Active Substance: ACETAMINOPHEN
     Indication: PYREXIA
     Route: 048
     Dates: start: 20140318, end: 20140320
  2. XIYANPING ZHUSHEYE [Concomitant]
     Active Substance: HERBALS
     Indication: BRONCHITIS
     Route: 042
     Dates: start: 20140318, end: 20140320
  3. RIBAVIRIN. [Suspect]
     Active Substance: RIBAVIRIN
     Indication: BRONCHITIS
     Route: 042
     Dates: start: 20140318, end: 20140320

REACTIONS (1)
  - Leukopenia [Recovered/Resolved]

NARRATIVE: CASE EVENT DATE: 20140320
